FAERS Safety Report 8393240-0 (Version None)
Quarter: 2012Q2

REPORT INFORMATION
  Report Type: 
  Country: None (occurrence: None)
  Receive Date: 20120529
  Receipt Date: 20120524
  Transmission Date: 20120825
  Serious: No
  Sender: FDA-Public Use
  Company Number: US-ABBOTT-12P-163-0939192-00

PATIENT
  Sex: Male

DRUGS (13)
  1. ANDROGEL [Suspect]
     Indication: BLOOD TESTOSTERONE DECREASED
     Dosage: 2 PUMPS ONCE DAILY
     Route: 061
     Dates: start: 20110801, end: 20111101
  2. ANDROGEL [Suspect]
     Dosage: 2 PUMPS ONCE DAILY
     Route: 061
     Dates: start: 20120201, end: 20120501
  3. ANDROGEL [Suspect]
     Dosage: 1 PUMP ONCE DAILY
     Route: 061
     Dates: start: 20120501
  4. VERELAN [Concomitant]
     Indication: HYPERTENSION
  5. BENICAR [Concomitant]
     Indication: HYPERTENSION
  6. LOVAZA [Concomitant]
     Indication: BLOOD TRIGLYCERIDES INCREASED
  7. LESCOL [Concomitant]
     Indication: BLOOD CHOLESTEROL INCREASED
  8. PRILOSEC [Concomitant]
     Indication: GASTROOESOPHAGEAL REFLUX DISEASE
  9. ANDROGEL [Suspect]
     Dosage: 4 PUMPS ONCE DAILY
     Route: 061
     Dates: start: 20111101, end: 20120101
  10. PROAIR HFA [Concomitant]
     Indication: ASTHMA
  11. ANDROGEL [Suspect]
     Dosage: 6 PUMPS ONCE DAILY
     Route: 061
     Dates: start: 20120101, end: 20120201
  12. CHLORTHALID [Concomitant]
     Indication: HYPERTENSION
  13. VITAMIN D [Concomitant]
     Indication: VITAMIN SUPPLEMENTATION

REACTIONS (7)
  - POLLAKIURIA [None]
  - NOCTURIA [None]
  - DRUG EFFECT DECREASED [None]
  - ERECTILE DYSFUNCTION [None]
  - ERECTION INCREASED [None]
  - DYSPNOEA [None]
  - BLOOD TESTOSTERONE ABNORMAL [None]
